FAERS Safety Report 6192399-3 (Version None)
Quarter: 2009Q2

REPORT INFORMATION
  Report Type: 
  Country: None (occurrence: None)
  Receive Date: 20090513
  Receipt Date: 20090513
  Transmission Date: 20091009
  Serious: Yes (Life-Threatening, Hospitalization, Disabling, Other)
  Sender: FDA-Public Use
  Company Number: None

PATIENT
  Sex: Female
  Weight: 98.4306 kg

DRUGS (3)
  1. LEVAQUIN [Suspect]
     Indication: INFLUENZA
     Dosage: 750ML 2 X DA ? IV
     Route: 042
     Dates: start: 20090201, end: 20090425
  2. LEVAQUIN [Suspect]
     Indication: PNEUMONIA
     Dosage: 750ML 2 X DA ? IV
     Route: 042
     Dates: start: 20090201, end: 20090425
  3. LEVAQUIN [Suspect]
     Indication: BRONCHITIS
     Dosage: 500MG 1 X DA PILL

REACTIONS (14)
  - ARTHRALGIA [None]
  - BLISTER [None]
  - ERYTHEMA [None]
  - GAIT DISTURBANCE [None]
  - JOINT SWELLING [None]
  - MUSCLE SPASMS [None]
  - MUSCULOSKELETAL PAIN [None]
  - MYALGIA [None]
  - OEDEMA PERIPHERAL [None]
  - PAIN IN EXTREMITY [None]
  - PNEUMONIA [None]
  - SKIN EXFOLIATION [None]
  - TENDON RUPTURE [None]
  - VIRAL UPPER RESPIRATORY TRACT INFECTION [None]
